FAERS Safety Report 4690257-4 (Version None)
Quarter: 2005Q2

REPORT INFORMATION
  Report Type: 
  Country: None (occurrence: None)
  Receive Date: 20050615
  Receipt Date: 20050309
  Transmission Date: 20051028
  Serious: Yes (Hospitalization, Disabling, Other)
  Sender: FDA-Public Use
  Company Number: US-MERCK-0503USA01739

PATIENT
  Age: 53 Year
  Sex: Male
  Weight: 95 kg

DRUGS (8)
  1. VIOXX [Suspect]
     Indication: ARTHRALGIA
     Route: 048
     Dates: start: 20011101, end: 20040101
  2. VIOXX [Suspect]
     Indication: PAIN
     Route: 048
     Dates: start: 20011101, end: 20040101
  3. PREDNISONE [Concomitant]
     Indication: RECTAL HAEMORRHAGE
     Route: 065
  4. IMMUNOTHERAPY (UNSPECIFIED) [Concomitant]
     Route: 065
  5. COLAZAL [Concomitant]
     Indication: RECTAL HAEMORRHAGE
     Route: 065
  6. IMURAN [Concomitant]
     Indication: COLITIS ULCERATIVE
     Route: 065
  7. CELEXA [Concomitant]
     Indication: DEPRESSION
     Route: 065
  8. ROWASA [Concomitant]
     Indication: RECTAL HAEMORRHAGE
     Route: 065

REACTIONS (19)
  - ACUTE MYOCARDIAL INFARCTION [None]
  - ANXIETY [None]
  - ATHEROSCLEROSIS [None]
  - BACK PAIN [None]
  - BLOOD CHOLESTEROL INCREASED [None]
  - CHEST DISCOMFORT [None]
  - CORONARY ARTERY OCCLUSION [None]
  - CROHN'S DISEASE [None]
  - DEAFNESS [None]
  - DISCOMFORT [None]
  - ELECTROCARDIOGRAM POOR R-WAVE PROGRESSION [None]
  - ENZYME ABNORMALITY [None]
  - HYPERTENSION [None]
  - MOVEMENT DISORDER [None]
  - NAUSEA [None]
  - PULMONARY CONGESTION [None]
  - QRS AXIS ABNORMAL [None]
  - SLEEP APNOEA SYNDROME [None]
  - VOMITING [None]
